FAERS Safety Report 16845403 (Version 1)
Quarter: 2019Q4

REPORT INFORMATION
  Report Type: Spontaneous
  Country: US (occurrence: US)
  Receive Date: 20190924
  Receipt Date: 20190924
  Transmission Date: 20200122
  Serious: No
  Sender: FDA-Public Use
  Company Number: None

PATIENT
  Sex: Female

DRUGS (1)
  1. NEULASTA [Suspect]
     Active Substance: PEGFILGRASTIM
     Indication: ENDOMETRIAL CANCER
     Dosage: ?          OTHER FREQUENCY:1-3 D AFTER CHEMO;?
     Route: 058
     Dates: start: 20190614

REACTIONS (3)
  - Fatigue [None]
  - Chest pain [None]
  - Dyspnoea [None]
